FAERS Safety Report 11496154 (Version 2)
Quarter: 2015Q3

REPORT INFORMATION
  Report Type: Spontaneous
  Country: GB (occurrence: GB)
  Receive Date: 20150911
  Receipt Date: 20150914
  Transmission Date: 20151125
  Serious: Yes (Hospitalization, Other)
  Sender: FDA-Public Use
  Company Number: GB-PFIZER INC-2015283513

PATIENT
  Sex: Male
  Weight: 3.2 kg

DRUGS (2)
  1. PHENYTOIN SODIUM. [Suspect]
     Active Substance: PHENYTOIN SODIUM
     Indication: EPILEPSY
     Dosage: 1 1/2 GR. (0.1 G.) B.D.
     Route: 064
  2. PHENOBARBITONE [Suspect]
     Active Substance: PHENOBARBITAL
     Indication: EPILEPSY
     Dosage: 1 GR. (65 MG.) B.D.
     Route: 064

REACTIONS (3)
  - Anaemia macrocytic [Recovered/Resolved]
  - Maternal exposure during pregnancy [Unknown]
  - Thrombocytopenic purpura [Recovered/Resolved]
